FAERS Safety Report 16500296 (Version 2)
Quarter: 2019Q3

REPORT INFORMATION
  Report Type: Spontaneous
  Country: US (occurrence: US)
  Receive Date: 20190701
  Receipt Date: 20190930
  Transmission Date: 20191004
  Serious: No
  Sender: FDA-Public Use
  Company Number: US-AUROBINDO-AUR-APL-2019-024690

PATIENT
  Age: 31 Year
  Sex: Male
  Weight: 91 kg

DRUGS (1)
  1. SILDENAFIL 100MG TABLETS USP [Suspect]
     Active Substance: SILDENAFIL
     Indication: SEXUAL DYSFUNCTION
     Dosage: 100 MILLIGRAM (AS NEEDED)
     Route: 065
     Dates: start: 20190422

REACTIONS (4)
  - Erythema [Not Recovered/Not Resolved]
  - Ocular hyperaemia [Not Recovered/Not Resolved]
  - Skin discolouration [Not Recovered/Not Resolved]
  - Hypersensitivity [Not Recovered/Not Resolved]
